FAERS Safety Report 8136046-X (Version None)
Quarter: 2012Q1

REPORT INFORMATION
  Report Type: 
  Country: None (occurrence: None)
  Receive Date: 20120214
  Receipt Date: 20120210
  Transmission Date: 20120608
  Serious: No
  Sender: FDA-Public Use
  Company Number: US-PFIZER INC-2012037157

PATIENT
  Sex: Female
  Weight: 60.8 kg

DRUGS (3)
  1. BENTYL [Concomitant]
     Dosage: UNK
  2. LYRICA [Suspect]
     Indication: CUBITAL TUNNEL SYNDROME
     Dosage: 75 MG, 1X/DAY
     Route: 048
     Dates: start: 20120206
  3. LYRICA [Suspect]
     Indication: NERVE INJURY

REACTIONS (3)
  - MIGRAINE [None]
  - INSOMNIA [None]
  - DIARRHOEA [None]
